FAERS Safety Report 5258313-X (Version None)
Quarter: 2007Q1

REPORT INFORMATION
  Report Type: 
  Country: None (occurrence: None)
  Receive Date: 20070306
  Receipt Date: 20070306
  Transmission Date: 20070707
  Serious: Yes (Disabling)
  Sender: FDA-Public Use
  Company Number: None

PATIENT
  Age: 53 Year
  Sex: Male
  Weight: 94.5 kg

DRUGS (1)
  1. FLEET PHOSPHO-SODA [Suspect]
     Indication: COLONOSCOPY
     Dates: start: 20020918

REACTIONS (2)
  - BLOOD CREATININE INCREASED [None]
  - RENAL INJURY [None]
